FAERS Safety Report 8258084-9 (Version None)
Quarter: 2012Q2

REPORT INFORMATION
  Report Type: 
  Country: None (occurrence: None)
  Receive Date: 20120404
  Receipt Date: 20120326
  Transmission Date: 20120825
  Serious: Yes (Hospitalization)
  Sender: FDA-Public Use
  Company Number: JP-VERTEX PHARMACEUTICALS INC.-AE-2012-004556

PATIENT
  Age: 63 Year
  Sex: Female

DRUGS (9)
  1. TELAVIC (TELAPREVIR) [Suspect]
     Indication: HEPATITIS C
     Route: 048
     Dates: start: 20120201, end: 20120203
  2. NIFEDIPINE [Concomitant]
  3. RIBAVIRIN [Concomitant]
     Dates: start: 20120214, end: 20120301
  4. LEVOTHYROXINE SODIUM [Concomitant]
  5. RIBAVIRIN [Concomitant]
     Dates: start: 20120314
  6. TELAVIC (TELAPREVIR) [Suspect]
     Dates: start: 20120220, end: 20120227
  7. TELAVIC (TELAPREVIR) [Suspect]
     Dates: start: 20120227, end: 20120301
  8. RIBAVIRIN [Concomitant]
     Indication: HEPATITIS C
     Route: 048
     Dates: start: 20120201, end: 20120203
  9. PEGINTERFERON [Concomitant]

REACTIONS (3)
  - MUSCULOSKELETAL STIFFNESS [None]
  - RHABDOMYOLYSIS [None]
  - RENAL DISORDER [None]
